FAERS Safety Report 8252089-X (Version None)
Quarter: 2012Q2

REPORT INFORMATION
  Report Type: 
  Country: None (occurrence: None)
  Receive Date: 20120402
  Receipt Date: 20120213
  Transmission Date: 20120825
  Serious: No
  Sender: FDA-Public Use
  Company Number: US-ABBOTT-10P-163-0800553-00

PATIENT
  Age: 48 Year
  Sex: Male
  Weight: 106 kg

DRUGS (6)
  1. ANDROGEL [Suspect]
     Indication: BLOOD TESTOSTERONE DECREASED
  2. UNKNOWN MEDICATION [Concomitant]
     Indication: BLOOD CHOLESTEROL
  3. ANDROGEL [Suspect]
     Indication: TESTIS CANCER
     Route: 062
     Dates: start: 20091015, end: 20110501
  4. METFORMIN HCL [Concomitant]
     Indication: DIABETES MELLITUS
     Dosage: DAILY DOSE:  UNKNOWN
     Route: 048
     Dates: start: 20050101
  5. UNKNOWN MEDICATION [Concomitant]
     Indication: BLOOD TRIGLYCERIDES INCREASED
  6. TESTOSTERONE [Suspect]
     Indication: BLOOD TESTOSTERONE DECREASED

REACTIONS (4)
  - ROTATOR CUFF SYNDROME [None]
  - MUSCULOSKELETAL PAIN [None]
  - THERAPEUTIC RESPONSE DECREASED [None]
  - APPLICATION SITE PAIN [None]
